FAERS Safety Report 18077773 (Version 1)
Quarter: 2020Q3

REPORT INFORMATION
  Report Type: Report from Study
  Country: CA (occurrence: CA)
  Receive Date: 20200728
  Receipt Date: 20200728
  Transmission Date: 20201103
  Serious: Yes (Other)
  Sender: FDA-Public Use
  Company Number: CA-ACCORD-192564

PATIENT
  Age: 75 Year
  Sex: Female

DRUGS (12)
  1. CIMZIA [Concomitant]
     Active Substance: CERTOLIZUMAB PEGOL
  2. CANNABIS SATIVA [Concomitant]
     Active Substance: CANNABIS SATIVA FLOWERING TOP
  3. BUTRANS [Concomitant]
     Active Substance: BUPRENORPHINE
  4. IRON [Suspect]
     Active Substance: IRON
     Indication: PRODUCT USED FOR UNKNOWN INDICATION
  5. PARACETAMOL [Concomitant]
     Active Substance: ACETAMINOPHEN
  6. COSENTYX [Suspect]
     Active Substance: SECUKINUMAB
     Indication: PSORIATIC ARTHROPATHY
     Route: 058
  7. ENBREL [Concomitant]
     Active Substance: ETANERCEPT
  8. METHOTREXATE. [Suspect]
     Active Substance: METHOTREXATE
     Indication: PRODUCT USED FOR UNKNOWN INDICATION
  9. COSENTYX [Suspect]
     Active Substance: SECUKINUMAB
     Indication: PSORIATIC ARTHROPATHY
     Dosage: 1 EVERY 1 WEEKS
     Route: 058
  10. LIPITOR [Concomitant]
     Active Substance: ATORVASTATIN CALCIUM
  11. HYDROXYCHLOROQUINE [Concomitant]
     Active Substance: HYDROXYCHLOROQUINE
  12. PREDNISONE. [Concomitant]
     Active Substance: PREDNISONE

REACTIONS (12)
  - Psoriatic arthropathy [Not Recovered/Not Resolved]
  - Dry skin [Not Recovered/Not Resolved]
  - Fatigue [Not Recovered/Not Resolved]
  - Injection site pain [Not Recovered/Not Resolved]
  - Lower respiratory tract infection [Not Recovered/Not Resolved]
  - Muscular weakness [Not Recovered/Not Resolved]
  - Drug ineffective [Unknown]
  - Injection site bruising [Not Recovered/Not Resolved]
  - Nausea [Not Recovered/Not Resolved]
  - Malaise [Not Recovered/Not Resolved]
  - Inappropriate schedule of product administration [Unknown]
  - Peripheral swelling [Not Recovered/Not Resolved]
